FAERS Safety Report 24200273 (Version 1)
Quarter: 2024Q3

REPORT INFORMATION
  Report Type: Spontaneous
  Country: US (occurrence: None)
  Receive Date: 20240809
  Receipt Date: 20240809
  Transmission Date: 20241017
  Serious: Yes (Other)
  Sender: Public
  Company Number: None

PATIENT
  Age: 45 Year
  Sex: Male
  Weight: 119.25 kg

DRUGS (1)
  1. BELBUCA [Suspect]
     Active Substance: BUPRENORPHINE HYDROCHLORIDE
     Indication: Back disorder
     Dosage: OTHER STRENGTH : MCG;?OTHER QUANTITY : 60 PATCH(ES);?FREQUENCY : TWICE A DAY;?
     Route: 048
     Dates: start: 20240401, end: 20240808

REACTIONS (4)
  - Product use issue [None]
  - Withdrawal syndrome [None]
  - Product communication issue [None]
  - Inability to afford medication [None]

NARRATIVE: CASE EVENT DATE: 20240807
